FAERS Safety Report 8429392-3 (Version None)
Quarter: 2012Q2

REPORT INFORMATION
  Report Type: 
  Country: None (occurrence: None)
  Receive Date: 20120612
  Receipt Date: 20120606
  Transmission Date: 20120825
  Serious: Yes (Other)
  Sender: FDA-Public Use
  Company Number: US-PFIZER INC-2012136435

PATIENT
  Sex: Female
  Weight: 63.039 kg

DRUGS (4)
  1. TAMOXIFEN CITRATE [Suspect]
     Indication: BREAST CANCER
     Dosage: UNK
     Dates: start: 20110101
  2. EFFEXOR XR [Suspect]
     Indication: DEPRESSION
     Dosage: 150 MG, DAILY
  3. EFFEXOR XR [Suspect]
     Dosage: 75 MG, DAILY
  4. EFFEXOR XR [Suspect]
     Indication: ANXIETY
     Dosage: 37.5 MG, DAILY

REACTIONS (3)
  - BREAST CANCER [None]
  - MALAISE [None]
  - WITHDRAWAL SYNDROME [None]
